FAERS Safety Report 9671852 (Version 1)
Quarter: 2013Q4

REPORT INFORMATION
  Report Type: Report from Study
  Country: BR (occurrence: BR)
  Receive Date: 20131106
  Receipt Date: 20131106
  Transmission Date: 20140711
  Serious: Yes (Hospitalization, Other)
  Sender: FDA-Public Use
  Company Number: BR-ABBVIE-13P-020-1165987-00

PATIENT
  Sex: Male
  Weight: 70 kg

DRUGS (2)
  1. HUMIRA [Suspect]
     Indication: CROHN^S DISEASE
     Route: 058
     Dates: start: 20130612, end: 20130808
  2. ALENIA [Concomitant]
     Indication: ASTHMATIC CRISIS
     Dosage: INHALANT / SPRAY AS NEEDED
     Route: 055
     Dates: start: 2004

REACTIONS (1)
  - Bone erosion [Unknown]
